FAERS Safety Report 15343646 (Version 3)
Quarter: 2018Q3

REPORT INFORMATION
  Report Type: Spontaneous
  Country: US (occurrence: US)
  Receive Date: 20180903
  Receipt Date: 20180926
  Transmission Date: 20181010
  Serious: Yes (Other)
  Sender: FDA-Public Use
  Company Number: US-PFIZER INC-2018352490

PATIENT
  Age: 55 Year
  Sex: Female

DRUGS (1)
  1. LYRICA [Suspect]
     Active Substance: PREGABALIN
     Dosage: 300 MG, UNK
     Dates: end: 201806

REACTIONS (4)
  - Feeling abnormal [Unknown]
  - Neuralgia [Unknown]
  - Burning sensation [Unknown]
  - Suicidal ideation [Unknown]
